FAERS Safety Report 8038371-X (Version None)
Quarter: 2012Q1

REPORT INFORMATION
  Report Type: 
  Country: None (occurrence: None)
  Receive Date: 20120111
  Receipt Date: 20111209
  Transmission Date: 20120608
  Serious: No
  Sender: FDA-Public Use
  Company Number: US-AMGEN-USASP2011052809

PATIENT
  Age: 59 Year
  Sex: Female
  Weight: 78.005 kg

DRUGS (9)
  1. MULTIVITAMIN                       /00097801/ [Concomitant]
     Dosage: UNK UNK, QD
  2. VITAMIN D                          /00318501/ [Concomitant]
     Dosage: 1000 UNK, QD
  3. CALCIUM CITRATE TETRAHYDRATE [Concomitant]
     Dosage: 1260 MG/800LU, UNK
  4. LESCOL [Concomitant]
     Dosage: 40 MG, QD
  5. ACTONEL [Concomitant]
     Dosage: 150 MG, QMO
  6. VITAMIN C                          /00008001/ [Concomitant]
     Dosage: 500 MG, QD
  7. ENBREL [Suspect]
     Indication: RHEUMATOID ARTHRITIS
     Dosage: 50 MG, QWK
     Dates: start: 20040101, end: 20110914
  8. METHOTREXATE [Concomitant]
     Dosage: 2.5 MG, 3 TABLETS WEEKLY
  9. FOLIC ACID [Concomitant]
     Dosage: 1 MG, QD

REACTIONS (1)
  - SINUSITIS [None]
